FAERS Safety Report 17741819 (Version 4)
Quarter: 2020Q3

REPORT INFORMATION
  Report Type: Report from Study
  Country: US (occurrence: US)
  Receive Date: 20200504
  Receipt Date: 20200813
  Transmission Date: 20201102
  Serious: No
  Sender: FDA-Public Use
  Company Number: NVSC2020US120018

PATIENT
  Age: 58 Year
  Sex: Female

DRUGS (1)
  1. COSENTYX [Suspect]
     Active Substance: SECUKINUMAB
     Indication: PSORIASIS
     Dosage: UNK UNK, UNKNOWN
     Route: 065

REACTIONS (7)
  - Blister [Unknown]
  - Treatment failure [Unknown]
  - Psoriasis [Unknown]
  - Skin exfoliation [Unknown]
  - Burning sensation [Unknown]
  - Clubbing [Unknown]
  - Arthropathy [Recovering/Resolving]
